FAERS Safety Report 5752192-X (Version None)
Quarter: 2008Q2

REPORT INFORMATION
  Report Type: 
  Country: None (occurrence: None)
  Receive Date: 20080529
  Receipt Date: 20080521
  Transmission Date: 20081010
  Serious: Yes (Hospitalization, Disabling)
  Sender: FDA-Public Use
  Company Number: JP-ELI_LILLY_AND_COMPANY-JP200707006395

PATIENT
  Sex: Male
  Weight: 51.6 kg

DRUGS (5)
  1. HUMATROPE [Suspect]
     Indication: GROWTH HORMONE DEFICIENCY
     Dosage: 1.2 MG, DAILY (1/D)
     Route: 058
     Dates: start: 20070126, end: 20070101
  2. HUMATROPE [Suspect]
     Dosage: 0.6 MG, DAILY (1/D)
     Route: 058
     Dates: start: 20070101
  3. CORTRIL [Concomitant]
     Indication: HYPOPITUITARISM
     Dosage: 6 MG, EACH MORNING
     Route: 048
     Dates: start: 20050121
  4. THYRADIN [Concomitant]
     Indication: HYPOPITUITARISM
     Dosage: 50 MG, DAILY (1/D)
     Route: 048
     Dates: start: 20050121
  5. DESMOPRESSIN ACETATE [Concomitant]
     Indication: HYPOPITUITARISM
     Dosage: 0.05 ML, 2/D
     Route: 045
     Dates: start: 20050121

REACTIONS (2)
  - EPIPHYSIOLYSIS [None]
  - HYPOGONADISM [None]
